FAERS Safety Report 7579393-2 (Version None)
Quarter: 2011Q2

REPORT INFORMATION
  Report Type: 
  Country: None (occurrence: None)
  Receive Date: 20110629
  Receipt Date: 20110620
  Transmission Date: 20111010
  Serious: Yes (Hospitalization)
  Sender: FDA-Public Use
  Company Number: US-BIOGENIDEC-2011BI021169

PATIENT
  Age: 49 Year
  Sex: Male
  Weight: 92 kg

DRUGS (6)
  1. PROTONIX [Concomitant]
     Route: 048
     Dates: start: 20110401
  2. AMPYRA [Concomitant]
     Route: 048
     Dates: start: 20100501
  3. BACLOFEN [Concomitant]
     Route: 048
     Dates: start: 20090101
  4. TYSABRI [Suspect]
     Indication: MULTIPLE SCLEROSIS
     Route: 042
     Dates: start: 20081230
  5. PROVIGIL [Concomitant]
     Route: 048
     Dates: start: 20080101
  6. LEXAPRO [Concomitant]
     Route: 048
     Dates: start: 20090101

REACTIONS (1)
  - CHOLECYSTITIS INFECTIVE [None]
